FAERS Safety Report 22968319 (Version 3)
Quarter: 2024Q1

REPORT INFORMATION
  Report Type: Spontaneous
  Country: US (occurrence: US)
  Receive Date: 20230921
  Receipt Date: 20240325
  Transmission Date: 20240410
  Serious: Yes (Life-Threatening, Hospitalization)
  Sender: FDA-Public Use
  Company Number: US-ELI_LILLY_AND_COMPANY-US202309009780

PATIENT
  Age: 29 Year
  Sex: Female
  Weight: 63.5 kg

DRUGS (1)
  1. TIRZEPATIDE [Suspect]
     Active Substance: TIRZEPATIDE
     Indication: Weight control
     Dosage: UNK, WEEKLY (1/W)
     Route: 058

REACTIONS (6)
  - Starvation ketoacidosis [Recovered/Resolved]
  - Hypophagia [Unknown]
  - Vomiting [Unknown]
  - Nausea [Unknown]
  - Gastrointestinal disorder [Unknown]
  - Off label use [Unknown]
